APPROVED DRUG PRODUCT: BUTALBITAL, ASPIRIN AND CAFFEINE
Active Ingredient: ASPIRIN; BUTALBITAL; CAFFEINE
Strength: 325MG;50MG;40MG **Federal Register determination that product was not discontinued or withdrawn for safety or effectiveness reasons**
Dosage Form/Route: TABLET;ORAL
Application: A086162 | Product #002
Applicant: HIKMA INTERNATIONAL PHARMACEUTICALS LLC
Approved: Feb 16, 1984 | RLD: Yes | RS: No | Type: DISCN